FAERS Safety Report 7386362-4 (Version None)
Quarter: 2011Q1

REPORT INFORMATION
  Report Type: 
  Country: None (occurrence: None)
  Receive Date: 20110331
  Receipt Date: 20110318
  Transmission Date: 20110831
  Serious: Yes (Other)
  Sender: FDA-Public Use
  Company Number: PHHY2010BR57172

PATIENT
  Sex: Female

DRUGS (1)
  1. DESERILA [Suspect]
     Dosage: 1MG, UNK

REACTIONS (4)
  - ABNORMAL BEHAVIOUR [None]
  - DAYDREAMING [None]
  - HALLUCINATION [None]
  - HEADACHE [None]
